FAERS Safety Report 5227385-0 (Version None)
Quarter: 2007Q1

REPORT INFORMATION
  Report Type: 
  Country: None (occurrence: None)
  Receive Date: 20070202
  Receipt Date: 20070123
  Transmission Date: 20070707
  Serious: Yes (Hospitalization)
  Sender: FDA-Public Use
  Company Number: 2007AP00524

PATIENT
  Age: 1694 Day
  Sex: Female
  Weight: 17.9 kg

DRUGS (8)
  1. PULMICORT RESPULES [Suspect]
     Indication: ASTHMA
     Route: 055
     Dates: start: 20061222, end: 20061222
  2. INTAL [Concomitant]
     Indication: ASTHMA
     Route: 055
     Dates: start: 20061222, end: 20061222
  3. VENETLIN [Concomitant]
     Indication: ASTHMA
     Route: 055
     Dates: start: 20061222, end: 20061222
  4. VENETLIN [Concomitant]
     Route: 055
     Dates: start: 20061222, end: 20061222
  5. ALEVAIRE [Concomitant]
     Indication: ASTHMA
     Route: 055
     Dates: start: 20061222, end: 20061222
  6. SOLITA-T NO.3 [Concomitant]
     Indication: BRONCHITIS
     Route: 041
     Dates: start: 20061222, end: 20061222
  7. ROCEPHIN [Concomitant]
     Indication: BRONCHITIS
     Route: 041
     Dates: start: 20061222, end: 20061222
  8. SEISHOKU [Concomitant]
     Indication: BRONCHITIS
     Route: 041
     Dates: start: 20061222, end: 20061222

REACTIONS (1)
  - ASTHMA [None]
